FAERS Safety Report 7792493-7 (Version None)
Quarter: 2011Q4

REPORT INFORMATION
  Report Type: 
  Country: None (occurrence: None)
  Receive Date: 20111003
  Receipt Date: 20110928
  Transmission Date: 20120403
  Serious: Yes (Other)
  Sender: FDA-Public Use
  Company Number: US-PFIZER INC-2011147901

PATIENT
  Sex: Female

DRUGS (1)
  1. CHANTIX [Suspect]
     Indication: SMOKING CESSATION THERAPY
     Dosage: UNK
     Dates: start: 20090121, end: 20090221

REACTIONS (8)
  - AGGRESSION [None]
  - SUICIDE ATTEMPT [None]
  - ANXIETY [None]
  - BIPOLAR II DISORDER [None]
  - MENTAL DISORDER [None]
  - ABNORMAL BEHAVIOUR [None]
  - DEPRESSION [None]
  - EMOTIONAL DISTRESS [None]
